FAERS Safety Report 7525781-X (Version None)
Quarter: 2011Q2

REPORT INFORMATION
  Report Type: 
  Country: None (occurrence: None)
  Receive Date: 20110606
  Receipt Date: 20110601
  Transmission Date: 20111010
  Serious: Yes (Death, Hospitalization)
  Sender: FDA-Public Use
  Company Number: PHHY2011BR47762

PATIENT
  Sex: Male
  Weight: 62 kg

DRUGS (2)
  1. EXELON [Suspect]
     Indication: DEMENTIA ALZHEIMER'S TYPE
     Dosage: 9MG/5CM2
     Route: 062
     Dates: start: 20100801, end: 20100901
  2. EXELON [Suspect]
     Dosage: 18MG/10CM2
     Route: 062
     Dates: start: 20100901, end: 20100901

REACTIONS (2)
  - PNEUMONIA [None]
  - URINARY TRACT INFECTION [None]
